FAERS Safety Report 11651181 (Version 1)
Quarter: 2015Q4

REPORT INFORMATION
  Report Type: Spontaneous
  Country: US (occurrence: US)
  Receive Date: 20151021
  Receipt Date: 20151021
  Transmission Date: 20160304
  Serious: No
  Sender: FDA-Public Use
  Company Number: US-BAUSCH-BL-2015-000040

PATIENT
  Age: 69 Year
  Sex: Female

DRUGS (6)
  1. BUPROPION. [Suspect]
     Active Substance: BUPROPION
     Route: 048
  2. BUPROPION. [Suspect]
     Active Substance: BUPROPION
     Route: 048
  3. BUPROPION. [Suspect]
     Active Substance: BUPROPION
     Route: 048
  4. BUPROPION. [Suspect]
     Active Substance: BUPROPION
     Indication: DEPRESSION
     Route: 048
     Dates: start: 20141010
  5. BUPROPION. [Suspect]
     Active Substance: BUPROPION
     Route: 048
  6. INSULIN [Concomitant]
     Active Substance: INSULIN NOS
     Indication: PRODUCT USED FOR UNKNOWN INDICATION

REACTIONS (4)
  - Wrong technique in product usage process [Unknown]
  - Tremor [Not Recovered/Not Resolved]
  - Blood glucose decreased [Recovered/Resolved]
  - Nervousness [Not Recovered/Not Resolved]
